FAERS Safety Report 15395791 (Version 1)
Quarter: 2018Q3

REPORT INFORMATION
  Report Type: Spontaneous
  Country: US (occurrence: US)
  Receive Date: 20180918
  Receipt Date: 20180918
  Transmission Date: 20181010
  Serious: Yes (Death, Hospitalization, Other)
  Sender: FDA-Public Use
  Company Number: US-ROCHE-2185810

PATIENT
  Age: 53 Year
  Sex: Male

DRUGS (1)
  1. ACTIVASE [Suspect]
     Active Substance: ALTEPLASE
     Indication: CEREBROVASCULAR ACCIDENT
     Route: 065
     Dates: start: 20180911

REACTIONS (4)
  - Death [Fatal]
  - Haemorrhage intracranial [Unknown]
  - Sepsis [Unknown]
  - Abdominal abscess [Unknown]

NARRATIVE: CASE EVENT DATE: 20180911
